FAERS Safety Report 8455594-6 (Version None)
Quarter: 2012Q2

REPORT INFORMATION
  Report Type: 
  Country: None (occurrence: None)
  Receive Date: 20120621
  Receipt Date: 20120609
  Transmission Date: 20120825
  Serious: Yes (Hospitalization)
  Sender: FDA-Public Use
  Company Number: RU-CELGENEUS-251-C5013-12061308

PATIENT
  Sex: Male
  Weight: 71.4 kg

DRUGS (3)
  1. LENALIDOMIDE [Suspect]
     Dosage: 5 MILLIGRAM
     Route: 048
     Dates: start: 20120314
  2. ACETAMINOPHEN [Concomitant]
     Dosage: 1000 MILLIGRAM
     Route: 048
     Dates: start: 20120527, end: 20120608
  3. LENALIDOMIDE [Suspect]
     Dosage: 5 MILLIGRAM
     Route: 048
     Dates: start: 20120604, end: 20120609

REACTIONS (4)
  - ALANINE AMINOTRANSFERASE INCREASED [None]
  - FATIGUE [None]
  - BLOOD ALKALINE PHOSPHATASE INCREASED [None]
  - PYREXIA [None]
